FAERS Safety Report 18229328 (Version 1)
Quarter: 2020Q3

REPORT INFORMATION
  Report Type: Spontaneous
  Country: JP (occurrence: JP)
  Receive Date: 20200903
  Receipt Date: 20200903
  Transmission Date: 20201103
  Serious: Yes (Other)
  Sender: FDA-Public Use
  Company Number: JP-PFIZER INC-2020338109

PATIENT

DRUGS (2)
  1. RHEUMATREX [Suspect]
     Active Substance: METHOTREXATE SODIUM
     Indication: RHEUMATOID ARTHRITIS
     Route: 048
  2. FOLINATE [Concomitant]
     Active Substance: LEUCOVORIN CALCIUM
     Dosage: 25 MG, 3X/DAY
     Route: 048

REACTIONS (1)
  - Colon cancer [Unknown]
